FAERS Safety Report 24140507 (Version 2)
Quarter: 2024Q3

REPORT INFORMATION
  Report Type: Spontaneous
  Country: DE (occurrence: DE)
  Receive Date: 20240726
  Receipt Date: 20240909
  Transmission Date: 20241016
  Serious: Yes (Death, Life-Threatening)
  Sender: ACCORD
  Company Number: None

PATIENT
  Age: 85 Year
  Sex: Female

DRUGS (1)
  1. METHOTREXATE [Suspect]
     Active Substance: METHOTREXATE
     Indication: Polymyalgia rheumatica

REACTIONS (9)
  - Disturbance in attention [Unknown]
  - Sepsis [Fatal]
  - Acute kidney injury [Fatal]
  - Hepatic enzyme increased [Unknown]
  - Neutropenia [Fatal]
  - Toxicity to various agents [Fatal]
  - Pancytopenia [Fatal]
  - Inappropriate schedule of product administration [Fatal]
  - Inappropriate schedule of product administration [Fatal]

NARRATIVE: CASE EVENT DATE: 20240621
